FAERS Safety Report 7159487-6 (Version None)
Quarter: 2010Q4

REPORT INFORMATION
  Report Type: 
  Country: None (occurrence: None)
  Receive Date: 20101214
  Receipt Date: 20100913
  Transmission Date: 20110411
  Serious: No
  Sender: FDA-Public Use
  Company Number: US-ASTRAZENECA-2010SE42835

PATIENT
  Age: 917 Month
  Sex: Female
  Weight: 68 kg

DRUGS (5)
  1. CRESTOR [Suspect]
     Indication: HYPERCHOLESTEROLAEMIA
     Route: 048
     Dates: start: 20100801, end: 20100901
  2. LOVAZA [Concomitant]
  3. DIOVAN [Concomitant]
  4. METOPROLOL [Concomitant]
  5. FEXOFENADINE HCL [Concomitant]

REACTIONS (3)
  - ALOPECIA [None]
  - DRY SKIN [None]
  - ERYTHEMA [None]
